FAERS Safety Report 21649187 (Version 4)
Quarter: 2023Q2

REPORT INFORMATION
  Report Type: Report from Study
  Country: US (occurrence: US)
  Receive Date: 20221128
  Receipt Date: 20230406
  Transmission Date: 20230722
  Serious: Yes (Other)
  Sender: FDA-Public Use
  Company Number: US-002147023-NVSC2022US202570

PATIENT
  Age: 74 Year
  Sex: Female
  Weight: 48 kg

DRUGS (1)
  1. LAMPRENE [Suspect]
     Active Substance: CLOFAZIMINE
     Indication: Mycobacterium abscessus infection
     Dosage: 100 MG
     Route: 048
     Dates: start: 20220119

REACTIONS (16)
  - Electrocardiogram QT prolonged [Not Recovered/Not Resolved]
  - Heart rate increased [Not Recovered/Not Resolved]
  - Right atrial volume increased [Not Recovered/Not Resolved]
  - Wheezing [Recovered/Resolved]
  - Fatigue [Recovering/Resolving]
  - Dry skin [Not Recovered/Not Resolved]
  - Tanning [Not Recovered/Not Resolved]
  - Back pain [Not Recovered/Not Resolved]
  - Nausea [Not Recovered/Not Resolved]
  - Dizziness [Recovered/Resolved]
  - Decreased appetite [Recovering/Resolving]
  - Weight decreased [Not Recovered/Not Resolved]
  - Haemoptysis [Recovered/Resolved]
  - Insomnia [Recovering/Resolving]
  - Vertigo [Not Recovered/Not Resolved]
  - COVID-19 [Recovered/Resolved]

NARRATIVE: CASE EVENT DATE: 20220201
